FAERS Safety Report 9848640 (Version 1)
Quarter: 2013Q4

REPORT INFORMATION
  Report Type: Spontaneous
  Country: US (occurrence: None)
  Receive Date: 20131224
  Receipt Date: 20131224
  Transmission Date: 20140711
  Serious: Yes (Hospitalization)
  Sender: FDA-Public Use
  Company Number: PHEH2013US016147

PATIENT
  Age: 75 Year
  Sex: Female

DRUGS (1)
  1. CLOZARIL (CLOZAPINE) UNKNOWN [Suspect]
     Dosage: UNK

REACTIONS (3)
  - Pneumonia [None]
  - White blood cell count increased [None]
  - Neutrophil count increased [None]
